FAERS Safety Report 13595044 (Version 1)
Quarter: 2017Q2

REPORT INFORMATION
  Report Type: Report from Study
  Country: BE (occurrence: BE)
  Receive Date: 20170531
  Receipt Date: 20170531
  Transmission Date: 20170830
  Serious: Yes (Death, Hospitalization, Other)
  Sender: FDA-Public Use
  Company Number: PHHY2017BE040858

PATIENT
  Age: 52 Year
  Sex: Female
  Weight: 78 kg

DRUGS (3)
  1. LITHIUM. [Suspect]
     Active Substance: LITHIUM
     Indication: PRODUCT USED FOR UNKNOWN INDICATION
     Dosage: UNK
     Route: 065
     Dates: start: 20170214
  2. GILENYA [Suspect]
     Active Substance: FINGOLIMOD HYDROCHLORIDE
     Dosage: 0.5 MG, QD
     Route: 048
     Dates: start: 20150212
  3. GILENYA [Suspect]
     Active Substance: FINGOLIMOD HYDROCHLORIDE
     Indication: MULTIPLE SCLEROSIS
     Dosage: 0.5 MG, QD
     Route: 048
     Dates: start: 20150212, end: 20170413

REACTIONS (27)
  - Tachycardia [Fatal]
  - Hiatus hernia [Fatal]
  - Respiratory distress [Fatal]
  - Pneumonia [Fatal]
  - Weight decreased [Fatal]
  - C-reactive protein increased [Unknown]
  - Major depression [Recovering/Resolving]
  - Multiple sclerosis [Fatal]
  - Tremor [Fatal]
  - Vomiting [Fatal]
  - Encephalopathy [Fatal]
  - Escherichia urinary tract infection [Fatal]
  - Pneumonia aspiration [Fatal]
  - Cryptococcosis [Fatal]
  - Agitation [None]
  - White blood cell count increased [Unknown]
  - Hypertension [Fatal]
  - Major depression [Recovering/Resolving]
  - Inflammation [Unknown]
  - Confusional state [Fatal]
  - Muscular weakness [Recovering/Resolving]
  - Blood fibrinogen increased [Unknown]
  - Anxiety [Unknown]
  - Fatigue [Fatal]
  - Neurological decompensation [Fatal]
  - Disorientation [Fatal]
  - Bipolar disorder [Recovering/Resolving]

NARRATIVE: CASE EVENT DATE: 20161215
